FAERS Safety Report 9680909 (Version 1)
Quarter: 2013Q4

REPORT INFORMATION
  Report Type: Spontaneous
  Country: JP (occurrence: JP)
  Receive Date: 20131111
  Receipt Date: 20131111
  Transmission Date: 20140711
  Serious: Yes (Death)
  Sender: FDA-Public Use
  Company Number: JP-ASTELLAS-2013JP012137

PATIENT
  Sex: Male

DRUGS (8)
  1. FUNGUARD [Suspect]
     Indication: BRONCHOPULMONARY ASPERGILLOSIS
     Dosage: UNK
     Route: 065
     Dates: start: 2013
  2. PROGRAF [Concomitant]
     Indication: IMMUNOSUPPRESSANT DRUG THERAPY
     Dosage: 4 MG, UNKNOWN/D
     Route: 065
  3. CELLCEPT                           /01275102/ [Concomitant]
     Indication: IMMUNOSUPPRESSANT DRUG THERAPY
     Dosage: 1000 MG, UNKNOWN/D
     Route: 065
  4. MEDROL                             /00049601/ [Concomitant]
     Indication: IMMUNOSUPPRESSANT DRUG THERAPY
     Dosage: 2 MG, UNKNOWN/D
     Route: 065
  5. BAKTAR [Concomitant]
     Indication: INTERSTITIAL LUNG DISEASE
     Dosage: UNK
     Route: 065
     Dates: start: 2013
  6. CEFEPIME [Concomitant]
     Indication: INTERSTITIAL LUNG DISEASE
     Dosage: UNK
     Route: 065
     Dates: start: 2013
  7. AZITHROMYCIN [Concomitant]
     Indication: INTERSTITIAL LUNG DISEASE
     Dosage: UNK
     Route: 065
     Dates: start: 2013
  8. GANCICLOVIR [Concomitant]
     Indication: INTERSTITIAL LUNG DISEASE
     Dosage: UNK
     Route: 065
     Dates: start: 2013

REACTIONS (2)
  - Drug ineffective [Unknown]
  - Bronchopulmonary aspergillosis [Fatal]
